FAERS Safety Report 17351541 (Version 2)
Quarter: 2020Q1

REPORT INFORMATION
  Report Type: Spontaneous
  Country: JP (occurrence: JP)
  Receive Date: 20200130
  Receipt Date: 20200305
  Transmission Date: 20200409
  Serious: Yes (Hospitalization, Other)
  Sender: FDA-Public Use
  Company Number: JP-PFIZER INC-2020039654

PATIENT
  Age: 45 Year
  Sex: Female
  Weight: 53 kg

DRUGS (7)
  1. PREDONINE [Concomitant]
     Active Substance: PREDNISOLONE
     Dosage: 5 MG (1 TABLET), 2X/DAY
     Route: 048
     Dates: start: 20190918, end: 20191001
  2. BIO-THREE [Concomitant]
     Active Substance: HERBALS
     Indication: COLITIS ULCERATIVE
     Dosage: 2 DF, 3X/DAY (2 TABLETS, 3X/DAY)
     Route: 048
  3. PREDONINE [Concomitant]
     Active Substance: PREDNISOLONE
     Indication: COLITIS ULCERATIVE
     Dosage: 10 MG (2 TABLETS), 2X/DAY
     Route: 048
     Dates: start: 20190904, end: 20190917
  4. XELJANZ [Suspect]
     Active Substance: TOFACITINIB CITRATE
     Dosage: 5 MG (1 TABLET), 2X/DAY
     Route: 048
     Dates: start: 20190405, end: 20190723
  5. XELJANZ [Suspect]
     Active Substance: TOFACITINIB CITRATE
     Indication: COLITIS ULCERATIVE
     Dosage: 10 MG, 2X/DAY (2 TABLETS)
     Route: 048
     Dates: start: 20190116, end: 20190405
  6. XELJANZ [Suspect]
     Active Substance: TOFACITINIB CITRATE
     Dosage: 10 MG (2 TABLET), 2X/DAY
     Route: 048
     Dates: start: 20190724, end: 20191206
  7. PREDONINE [Concomitant]
     Active Substance: PREDNISOLONE
     Dosage: 5 MG (1 TABLET), 1X/DAY
     Route: 048
     Dates: start: 20191002, end: 20191016

REACTIONS (8)
  - Pericarditis [Recovered/Resolved]
  - Haematochezia [Unknown]
  - Oedema peripheral [Unknown]
  - Abdominal pain [Unknown]
  - Melaena [Unknown]
  - Pleurisy [Recovered/Resolved]
  - Colitis ulcerative [Unknown]
  - Anal haemorrhage [Unknown]

NARRATIVE: CASE EVENT DATE: 20190502
